FAERS Safety Report 20751438 (Version 1)
Quarter: 2022Q2

REPORT INFORMATION
  Report Type: Spontaneous
  Country: US (occurrence: None)
  Receive Date: 20220426
  Receipt Date: 20220426
  Transmission Date: 20220720
  Serious: Yes (Hospitalization)
  Sender: FDA-Public Use
  Company Number: None

PATIENT

DRUGS (1)
  1. ERTAPENEM SODIUM [Suspect]
     Active Substance: ERTAPENEM SODIUM
     Route: 030

REACTIONS (5)
  - Incorrect route of product administration [None]
  - Product preparation error [None]
  - Product prescribing issue [None]
  - Product prescribing error [None]
  - Drug monitoring procedure not performed [None]
